FAERS Safety Report 13972392 (Version 1)
Quarter: 2017Q3

REPORT INFORMATION
  Report Type: Spontaneous
  Country: US (occurrence: None)
  Receive Date: 20170914
  Receipt Date: 20170914
  Transmission Date: 20171128
  Serious: Yes (Hospitalization)
  Sender: FDA-Public Use
  Company Number: None

PATIENT
  Age: 78 Year
  Sex: Female

DRUGS (2)
  1. LETROZOLE. [Concomitant]
     Active Substance: LETROZOLE
  2. IBRANCE [Suspect]
     Active Substance: PALBOCICLIB
     Indication: BREAST CANCER FEMALE
     Dosage: 75MG DAILY PO-TAKEN FOR 3 WEEKS, THEN OFF ONE WEEK
     Route: 048
     Dates: start: 20170120

REACTIONS (1)
  - Ear operation [None]

NARRATIVE: CASE EVENT DATE: 20170905
